FAERS Safety Report 7852183-9 (Version None)
Quarter: 2011Q4

REPORT INFORMATION
  Report Type: 
  Country: None (occurrence: None)
  Receive Date: 20111026
  Receipt Date: 20111021
  Transmission Date: 20120403
  Serious: Yes (Hospitalization)
  Sender: FDA-Public Use
  Company Number: SE-PFIZER INC-2011197398

PATIENT
  Age: 64 Year
  Sex: Female
  Weight: 74 kg

DRUGS (5)
  1. ATENOLOL [Concomitant]
     Dosage: 50 MG, 1X/DAY
     Dates: start: 20110104
  2. INSULATARD NPH HUMAN [Concomitant]
     Dosage: 16 IU, 1X/DAY
  3. SUTENT [Suspect]
     Indication: RENAL CANCER
     Dosage: 50 MG, 1X/DAY, 4 WEEKS AND 2 WEEKS INTERMISSION
     Route: 048
     Dates: start: 20101129
  4. SUTENT [Suspect]
     Dosage: 25 MG, 1X/DAY
     Dates: end: 20110603
  5. NOVORAPID [Concomitant]
     Dosage: 6 IU, 3X/DAY

REACTIONS (6)
  - DISEASE PROGRESSION [None]
  - MUCOSAL INFLAMMATION [None]
  - HYPERTENSION [None]
  - ORGANISING PNEUMONIA [None]
  - RENAL CANCER [None]
  - STOMATITIS [None]
